FAERS Safety Report 5883766-3 (Version None)
Quarter: 2008Q3

REPORT INFORMATION
  Report Type: 
  Country: None (occurrence: None)
  Receive Date: 20080915
  Receipt Date: 20080905
  Transmission Date: 20090109
  Serious: Yes (Hospitalization, Congenital Anomaly)
  Sender: FDA-Public Use
  Company Number: A0683595A

PATIENT
  Sex: Female

DRUGS (2)
  1. PAXIL [Suspect]
     Indication: DEPRESSION
  2. PAXIL CR [Suspect]
     Indication: DEPRESSION

REACTIONS (7)
  - APNOEA [None]
  - CARDIAC ARREST [None]
  - CONGENITAL AORTIC ATRESIA [None]
  - DRUG EXPOSURE DURING PREGNANCY [None]
  - HEART DISEASE CONGENITAL [None]
  - RESPIRATORY DISTRESS [None]
  - VENTRICULAR SEPTAL DEFECT [None]
